FAERS Safety Report 14779642 (Version 2)
Quarter: 2018Q2

REPORT INFORMATION
  Report Type: Spontaneous
  Country: VN (occurrence: VN)
  Receive Date: 20180419
  Receipt Date: 20180517
  Transmission Date: 20180711
  Serious: Yes (Death)
  Sender: FDA-Public Use
  Company Number: VN-B.I. PHARMACEUTICALS,INC./RIDGEFIELD-2018-BI-016000

PATIENT
  Age: 45 Year
  Sex: Female

DRUGS (2)
  1. GILOTRIF [Suspect]
     Active Substance: AFATINIB
     Indication: NON-SMALL CELL LUNG CANCER
     Route: 065
     Dates: start: 20180316, end: 20180402
  2. GILOTRIF [Suspect]
     Active Substance: AFATINIB
     Indication: GENE MUTATION

REACTIONS (2)
  - Pulmonary haemorrhage [Fatal]
  - Off label use [Unknown]
